FAERS Safety Report 6448419-1 (Version None)
Quarter: 2009Q4

REPORT INFORMATION
  Report Type: 
  Country: None (occurrence: None)
  Receive Date: 20091120
  Receipt Date: 20091109
  Transmission Date: 20100525
  Serious: Yes (Other)
  Sender: FDA-Public Use
  Company Number: US-MYLANLABS-2009S1019564

PATIENT
  Age: 61 Year
  Sex: Female

DRUGS (9)
  1. FLOVENT HFA [Suspect]
     Indication: CHRONIC OBSTRUCTIVE PULMONARY DISEASE
     Dosage: 2 PUFFS
     Route: 055
     Dates: start: 20030101
  2. BUDESONIDE [Suspect]
  3. DUONEB [Suspect]
     Indication: CHRONIC OBSTRUCTIVE PULMONARY DISEASE
  4. POTASSIUM CHLORIDE [Concomitant]
  5. LORAZEPAM [Concomitant]
  6. FLUCONAZOLE [Concomitant]
  7. DICYCLOMINE HCL /00068601/ [Concomitant]
  8. PANTOPRAZOLE [Concomitant]
  9. FRUSEMIDE [Concomitant]

REACTIONS (6)
  - CHRONIC OBSTRUCTIVE PULMONARY DISEASE [None]
  - CONDITION AGGRAVATED [None]
  - DRUG EFFECT DECREASED [None]
  - ECONOMIC PROBLEM [None]
  - LUNG DISORDER [None]
  - PNEUMONIA [None]
